FAERS Safety Report 10136482 (Version 1)
Quarter: 2014Q2

REPORT INFORMATION
  Report Type: Spontaneous
  Country: US (occurrence: None)
  Receive Date: 20140425
  Receipt Date: 20140425
  Transmission Date: 20141212
  Serious: Yes (Other)
  Sender: FDA-Public Use
  Company Number: DEP_02002_2014

PATIENT
  Age: 51 Year
  Sex: Female

DRUGS (10)
  1. GABAPENTIN [Suspect]
     Indication: BACK PAIN
     Dosage: TITRATED UP TO 600 MG
     Dates: start: 201104
  2. GABAPENTIN [Suspect]
     Indication: OFF LABEL USE
     Dosage: TITRATED UP TO 600 MG
     Dates: start: 201104
  3. GLYBURIDE [Concomitant]
  4. METFORMIN [Concomitant]
  5. BACLOFEN [Concomitant]
  6. TRUVADA [Concomitant]
  7. DARUNAVIR [Concomitant]
  8. ASPIRIN [Concomitant]
  9. TRAZODONE [Concomitant]
  10. RITONAVIR [Concomitant]

REACTIONS (4)
  - Hepatotoxicity [None]
  - Pruritus [None]
  - Drug-induced liver injury [None]
  - Hepatitis [None]
